FAERS Safety Report 12625967 (Version 1)
Quarter: 2016Q3

REPORT INFORMATION
  Report Type: Report from Study
  Country: FR (occurrence: FR)
  Receive Date: 20160805
  Receipt Date: 20160805
  Transmission Date: 20161109
  Serious: Yes (Hospitalization)
  Sender: FDA-Public Use
  Company Number: FR-GLAXOSMITHKLINE-FR2016GSK097539

PATIENT
  Age: 11 Year
  Sex: Male

DRUGS (4)
  1. ZANAMIVIR [Suspect]
     Active Substance: ZANAMIVIR
     Indication: INFLUENZA
     Dosage: 400 MG, BID
     Route: 042
     Dates: start: 20160701
  2. IMMUNOGLOBULINES [Concomitant]
     Active Substance: UNSPECIFIED INGREDIENT
     Dosage: 20 G, SINGLE
     Route: 042
     Dates: start: 20160315, end: 20160315
  3. BACTRIM [Concomitant]
     Active Substance: SULFAMETHOXAZOLE\TRIMETHOPRIM
  4. EUPANTOL [Concomitant]
     Active Substance: PANTOPRAZOLE SODIUM

REACTIONS (1)
  - General symptom [Not Recovered/Not Resolved]

NARRATIVE: CASE EVENT DATE: 201607
